FAERS Safety Report 24552755 (Version 7)
Quarter: 2025Q1

REPORT INFORMATION
  Report Type: Spontaneous
  Country: IT (occurrence: IT)
  Receive Date: 20241027
  Receipt Date: 20250131
  Transmission Date: 20250409
  Serious: Yes (Death, Hospitalization, Other)
  Sender: ROCHE
  Company Number: None

PATIENT
  Age: 79 Year
  Sex: Male
  Weight: 60 kg

DRUGS (53)
  1. RITUXIMAB [Suspect]
     Active Substance: RITUXIMAB
     Indication: Diffuse large B-cell lymphoma stage III
     Route: 040
     Dates: start: 20240805, end: 20240805
  2. RITUXIMAB [Suspect]
     Active Substance: RITUXIMAB
     Route: 040
     Dates: start: 20240905, end: 20240905
  3. VINCRISTINE [Suspect]
     Active Substance: VINCRISTINE
     Indication: Diffuse large B-cell lymphoma stage III
     Route: 040
     Dates: start: 20240806, end: 20240806
  4. VINCRISTINE [Suspect]
     Active Substance: VINCRISTINE
     Route: 040
     Dates: start: 20240905, end: 20240905
  5. EPCORITAMAB [Suspect]
     Active Substance: EPCORITAMAB
     Indication: Diffuse large B-cell lymphoma stage III
     Route: 058
     Dates: start: 20240806, end: 20240806
  6. EPCORITAMAB [Suspect]
     Active Substance: EPCORITAMAB
     Route: 058
     Dates: start: 20240912
  7. EPCORITAMAB [Suspect]
     Active Substance: EPCORITAMAB
     Route: 058
     Dates: start: 20240826, end: 20240912
  8. EPCORITAMAB [Suspect]
     Active Substance: EPCORITAMAB
     Route: 058
     Dates: start: 20240813, end: 20240813
  9. EPCORITAMAB [Suspect]
     Active Substance: EPCORITAMAB
     Route: 058
     Dates: start: 20240905, end: 20240905
  10. DOXORUBICIN [Suspect]
     Active Substance: DOXORUBICIN
     Indication: Diffuse large B-cell lymphoma stage III
     Route: 040
     Dates: start: 20240806, end: 20240806
  11. DOXORUBICIN [Suspect]
     Active Substance: DOXORUBICIN
     Route: 040
     Dates: start: 20240905, end: 20240905
  12. PREDNISONE [Suspect]
     Active Substance: PREDNISONE
     Indication: Diffuse large B-cell lymphoma stage III
     Dosage: 100 MG/DAY ON D1-D5, AS A PART OF R-CHOP REGIMEN
     Route: 048
     Dates: start: 20240906, end: 20240906
  13. PREDNISONE [Suspect]
     Active Substance: PREDNISONE
     Indication: Leukaemia
     Route: 048
     Dates: start: 20240820, end: 20240912
  14. PREDNISONE [Suspect]
     Active Substance: PREDNISONE
     Indication: Pneumonia
     Route: 048
     Dates: start: 20240816, end: 20240816
  15. PREDNISONE [Suspect]
     Active Substance: PREDNISONE
     Route: 050
     Dates: start: 20240820, end: 20240820
  16. PREDNISONE [Suspect]
     Active Substance: PREDNISONE
     Route: 048
     Dates: start: 20240909, end: 20240912
  17. PREDNISONE [Suspect]
     Active Substance: PREDNISONE
     Dosage: 50 MILLIGRAM, BID, AS A PART OF R-CHOP REGIMEN
     Route: 048
     Dates: start: 20240909, end: 20240909
  18. PREDNISONE [Suspect]
     Active Substance: PREDNISONE
     Route: 048
     Dates: start: 20240816, end: 20240909
  19. PREDNISONE [Suspect]
     Active Substance: PREDNISONE
     Route: 048
     Dates: start: 20240910, end: 20240911
  20. METHYLPREDNISOLONE [Suspect]
     Active Substance: METHYLPREDNISOLONE
     Indication: Diffuse large B-cell lymphoma stage III
     Route: 040
     Dates: start: 20240905, end: 20240905
  21. METHYLPREDNISOLONE [Suspect]
     Active Substance: METHYLPREDNISOLONE
     Route: 040
     Dates: start: 20240826, end: 20240829
  22. METHYLPREDNISOLONE [Suspect]
     Active Substance: METHYLPREDNISOLONE
     Route: 040
     Dates: start: 20240905, end: 20240905
  23. METHYLPREDNISOLONE [Suspect]
     Active Substance: METHYLPREDNISOLONE
     Route: 040
     Dates: start: 20240805, end: 20240905
  24. CYCLOPHOSPHAMIDE [Suspect]
     Active Substance: CYCLOPHOSPHAMIDE
     Indication: Diffuse large B-cell lymphoma stage III
     Route: 040
     Dates: start: 20240806, end: 20240806
  25. CYCLOPHOSPHAMIDE [Suspect]
     Active Substance: CYCLOPHOSPHAMIDE
     Route: 040
     Dates: start: 20240905, end: 20240905
  26. LAMIVUDINE [Concomitant]
     Active Substance: LAMIVUDINE
     Route: 065
     Dates: start: 20240725
  27. ALLOPURINOL [Concomitant]
     Active Substance: ALLOPURINOL
     Route: 065
     Dates: start: 20240725
  28. FOLIC ACID [Concomitant]
     Active Substance: FOLIC ACID
     Route: 065
     Dates: start: 20240725
  29. ACYCLOVIR [Concomitant]
     Active Substance: ACYCLOVIR
     Route: 065
     Dates: start: 20240725
  30. SITAGLIPTIN [Concomitant]
     Active Substance: SITAGLIPTIN
     Route: 065
     Dates: start: 20240725, end: 20240819
  31. NISTATIN [Concomitant]
     Active Substance: NYSTATIN
     Route: 065
     Dates: start: 20240813
  32. FLUCONAZOLE [Concomitant]
     Active Substance: FLUCONAZOLE
     Route: 065
     Dates: start: 20240813
  33. AMIKACIN [Concomitant]
     Active Substance: AMIKACIN
     Route: 065
     Dates: start: 20240819, end: 20240821
  34. TAMSULOSIN HYDROCHLORIDE [Concomitant]
     Active Substance: TAMSULOSIN HYDROCHLORIDE
     Dates: start: 20240725
  35. LORATADINE [Concomitant]
     Active Substance: LORATADINE
     Route: 050
     Dates: start: 20240912, end: 20240912
  36. ACETAMINOPHEN [Concomitant]
     Active Substance: ACETAMINOPHEN
     Route: 050
     Dates: start: 20240912, end: 20240912
  37. DEXAMETHASONE [Concomitant]
     Active Substance: DEXAMETHASONE
     Route: 050
     Dates: start: 20240912, end: 20240912
  38. CEFIXIME [Concomitant]
     Active Substance: CEFIXIME
     Route: 065
     Dates: start: 20240912
  39. SIMVASTATIN [Concomitant]
     Active Substance: SIMVASTATIN
     Route: 065
     Dates: start: 20240725
  40. PANTOPRAZOLE SODIUM [Concomitant]
     Active Substance: PANTOPRAZOLE SODIUM
     Dates: start: 20240725
  41. LACIDIPINE [Concomitant]
     Active Substance: LACIDIPINE
     Route: 065
     Dates: start: 20240725
  42. FILGRASTIM [Concomitant]
     Active Substance: FILGRASTIM
     Route: 065
     Dates: start: 20240813, end: 20240816
  43. CEFTAZIDIME [Concomitant]
     Active Substance: CEFTAZIDIME
     Route: 065
     Dates: start: 20240819, end: 20240827
  44. SULFAMETHOXAZOLE\TRIMETHOPRIM [Concomitant]
     Active Substance: SULFAMETHOXAZOLE\TRIMETHOPRIM
     Dates: start: 20240725
  45. FUROSEMIDE [Concomitant]
     Active Substance: FUROSEMIDE
     Dates: start: 20240725, end: 20240725
  46. METFORMIN HYDROCHLORIDE\PIOGLITAZONE HYDROCHLORIDE [Concomitant]
     Active Substance: METFORMIN HYDROCHLORIDE\PIOGLITAZONE HYDROCHLORIDE
     Dates: start: 20240725
  47. TOCILIZUMAB [Concomitant]
     Active Substance: TOCILIZUMAB
     Dates: start: 20240827, end: 20240827
  48. ISAVUCONAZOLE [Concomitant]
     Active Substance: ISAVUCONAZOLE
  49. PIPERACILLIN SODIUM\TAZOBACTAM SODIUM [Concomitant]
     Active Substance: PIPERACILLIN SODIUM\TAZOBACTAM SODIUM
  50. CANRENONE [Concomitant]
     Active Substance: CANRENONE
  51. LANTUS [Concomitant]
     Active Substance: INSULIN GLARGINE
  52. LASIX [Concomitant]
     Active Substance: FUROSEMIDE
  53. HUMALOG [Concomitant]
     Active Substance: INSULIN LISPRO

REACTIONS (15)
  - Septic shock [Fatal]
  - Asthenia [Fatal]
  - Dyspnoea [Fatal]
  - Pyrexia [Fatal]
  - Chills [Fatal]
  - Tachycardia [Fatal]
  - Hypotension [Fatal]
  - Hypocapnia [Unknown]
  - Blood lactic acid increased [Unknown]
  - Pneumonitis [Unknown]
  - Cough [Unknown]
  - Leukopenia [Unknown]
  - Neutropenia [Unknown]
  - Hyperglycaemia [Unknown]
  - Respiratory failure [Unknown]

NARRATIVE: CASE EVENT DATE: 20240913
